FAERS Safety Report 10730322 (Version 5)
Quarter: 2017Q3

REPORT INFORMATION
  Report Type: Spontaneous
  Country: US (occurrence: US)
  Receive Date: 20150122
  Receipt Date: 20170922
  Transmission Date: 20171127
  Serious: Yes (Hospitalization, Other)
  Sender: FDA-Public Use
  Company Number: US-BIOMARINAP-US-2015-105308

PATIENT
  Sex: Female

DRUGS (2)
  1. ALDURAZYME [Suspect]
     Active Substance: LARONIDASE
     Dosage: UNK
     Route: 041
     Dates: start: 20050517
  2. ALDURAZYME [Suspect]
     Active Substance: LARONIDASE
     Indication: MUCOPOLYSACCHARIDOSIS I
     Dosage: 37.7 MG, QW
     Route: 041
     Dates: start: 200505, end: 20150504

REACTIONS (6)
  - Pain [Not Recovered/Not Resolved]
  - Medical device implantation [Not Recovered/Not Resolved]
  - Cholelithiasis [Not Recovered/Not Resolved]
  - Transient ischaemic attack [Unknown]
  - Device malfunction [Not Recovered/Not Resolved]
  - Scar [Not Recovered/Not Resolved]
